FAERS Safety Report 17994811 (Version 1)
Quarter: 2020Q3

REPORT INFORMATION
  Report Type: Spontaneous
  Country: US (occurrence: US)
  Receive Date: 20200708
  Receipt Date: 20200708
  Transmission Date: 20201103
  Serious: Yes (Hospitalization)
  Sender: FDA-Public Use
  Company Number: None

PATIENT

DRUGS (1)
  1. OLANZAPINE. [Suspect]
     Active Substance: OLANZAPINE
     Dates: start: 20190508, end: 20190513

REACTIONS (9)
  - Hypophagia [None]
  - Tachycardia [None]
  - Balance disorder [None]
  - Dysuria [None]
  - Asthenia [None]
  - Confusional state [None]
  - Dysphagia [None]
  - Hypokalaemia [None]
  - Somnolence [None]

NARRATIVE: CASE EVENT DATE: 20190511
